FAERS Safety Report 15678646 (Version 1)
Quarter: 2018Q4

REPORT INFORMATION
  Report Type: Spontaneous
  Country: US (occurrence: US)
  Receive Date: 20181130
  Receipt Date: 20181130
  Transmission Date: 20190205
  Serious: Yes (Hospitalization)
  Sender: FDA-Public Use
  Company Number: None

PATIENT
  Age: 61 Year
  Sex: Female

DRUGS (13)
  1. SERTRALINE TAB 100MG [Concomitant]
     Dates: start: 20181004
  2. PREDNISONE TAB 5MG [Concomitant]
     Dates: start: 20181016
  3. HUMIRA [Suspect]
     Active Substance: ADALIMUMAB
     Indication: RHEUMATOID ARTHRITIS
     Dosage: ?          OTHER FREQUENCY:WEEKLY;?
     Route: 058
  4. CEPHALEXIN CAP 500MG [Concomitant]
     Dates: start: 20181113
  5. GABAPENTIN CAP 300MG [Concomitant]
     Active Substance: GABAPENTIN
     Dates: start: 20180928
  6. PANTOPRAZOLE TAB 40MG [Concomitant]
     Dates: start: 20180921
  7. DICLOFENAC GEL 1% [Concomitant]
     Active Substance: DICLOFENAC
     Dates: start: 20181113
  8. METOPROLOL TAR TAB 100MG [Concomitant]
     Dates: start: 20181102
  9. LEFLUNOMIDE TAB 20MG [Concomitant]
     Dates: start: 20180921
  10. VITAMIN D CAP 50000 UNIT [Concomitant]
     Dates: start: 20180921
  11. CELECOXIB CAP 200MG [Concomitant]
     Dates: start: 20181120
  12. PREDNISONE TAB 50MG [Concomitant]
     Dates: start: 20181115
  13. SMZ/TMP DS TAB 800-160 [Concomitant]
     Active Substance: SULFAMETHOXAZOLE\TRIMETHOPRIM
     Dates: start: 20181109

REACTIONS (2)
  - Muscle disorder [None]
  - Localised infection [None]

NARRATIVE: CASE EVENT DATE: 20181119
